FAERS Safety Report 4710608-1 (Version None)
Quarter: 2005Q3

REPORT INFORMATION
  Report Type: 
  Country: None (occurrence: None)
  Receive Date: 20050707
  Receipt Date: 20050616
  Transmission Date: 20060218
  Serious: Yes (Hospitalization)
  Sender: FDA-Public Use
  Company Number: JP_050306218

PATIENT
  Age: 60 Year
  Sex: Male
  Weight: 58 kg

DRUGS (6)
  1. HUMALOG [Suspect]
     Indication: DIABETES MELLITUS
     Dosage: 6 U/3 DAY
     Dates: start: 20021101
  2. HUMALOG [Suspect]
     Indication: LIVER DISORDER
     Dosage: 6 U/3 DAY
     Dates: start: 20021101
  3. INNOLET N (ISOPHANE INSULIN) [Concomitant]
  4. URSO (URSODEXYCHOLIC ACID) [Concomitant]
  5. SM POWDER [Concomitant]
  6. ADVAFERON (INTERFERON ALFACON-1) [Concomitant]

REACTIONS (3)
  - BLOOD CHOLESTEROL INCREASED [None]
  - HEPATIC NEOPLASM MALIGNANT [None]
  - SPLENOMEGALY [None]
